FAERS Safety Report 18163895 (Version 2)
Quarter: 2020Q3

REPORT INFORMATION
  Report Type: Spontaneous
  Country: US (occurrence: US)
  Receive Date: 20200818
  Receipt Date: 20200909
  Transmission Date: 20201103
  Serious: Yes (Other)
  Sender: FDA-Public Use
  Company Number: US-FOUNDATIONCONSUMERHC-2020-US-016357

PATIENT
  Age: 35 Year
  Sex: Female
  Weight: 66.68 kg

DRUGS (2)
  1. DULCOLAX NOS [Suspect]
     Active Substance: BISACODYL OR DOCUSATE SODIUM
     Dosage: 20 DAILY IN JAN?2020, THEN TAPERED OFF
     Dates: start: 2007, end: 202003
  2. BRONKAID DUAL ACTION FORMULA [Suspect]
     Active Substance: EPHEDRINE SULFATE\GUAIFENESIN
     Indication: SUBSTANCE ABUSE
     Dosage: NO LESS THAN 4 A DAY, THEN TAPERED OFF
     Route: 048
     Dates: start: 2007, end: 20200414

REACTIONS (8)
  - Product use in unapproved indication [Recovered/Resolved]
  - Dyspnoea [Not Recovered/Not Resolved]
  - Weight increased [Unknown]
  - Intentional product misuse [Recovered/Resolved]
  - Substance abuse [Unknown]
  - Oedema [Unknown]
  - Hypertension [Unknown]
  - Electrocardiogram abnormal [Unknown]

NARRATIVE: CASE EVENT DATE: 2007
